FAERS Safety Report 24194820 (Version 5)
Quarter: 2025Q2

REPORT INFORMATION
  Report Type: Report from Study
  Country: US (occurrence: US)
  Receive Date: 20240809
  Receipt Date: 20250611
  Transmission Date: 20250717
  Serious: Yes (Hospitalization, Other)
  Sender: PFIZER
  Company Number: US-PFIZER INC-202400232319

PATIENT
  Age: 71 Year
  Sex: Male

DRUGS (4)
  1. VYNDAMAX [Suspect]
     Active Substance: TAFAMIDIS
     Dosage: TAKE 1 CAPSULE (61 MG) BY MOUTH ONCE DAILY
     Route: 048
     Dates: start: 20240409
  2. VYNDAMAX [Suspect]
     Active Substance: TAFAMIDIS
     Dosage: 1 CAPSULE (61 MG) ONCE DAILY
     Route: 048
     Dates: start: 202405
  3. VYNDAMAX [Suspect]
     Active Substance: TAFAMIDIS
     Dosage: TAKE 1 CAPSULE (61 MG) ONCE DAILY
  4. VYNDAMAX [Suspect]
     Active Substance: TAFAMIDIS
     Dosage: TAKE 61MG CAPSULE BY MOUTH ONCE DAILY
     Route: 048

REACTIONS (17)
  - Cardiac failure congestive [Not Recovered/Not Resolved]
  - Cough [Not Recovered/Not Resolved]
  - Heart rate irregular [Not Recovered/Not Resolved]
  - Somnolence [Not Recovered/Not Resolved]
  - Musculoskeletal stiffness [Not Recovered/Not Resolved]
  - Asthenia [Not Recovered/Not Resolved]
  - Neck pain [Not Recovered/Not Resolved]
  - Bone pain [Not Recovered/Not Resolved]
  - Pain [Not Recovered/Not Resolved]
  - Headache [Not Recovered/Not Resolved]
  - Weight increased [Not Recovered/Not Resolved]
  - Glycosylated haemoglobin increased [Not Recovered/Not Resolved]
  - Fatigue [Not Recovered/Not Resolved]
  - Decreased interest [Not Recovered/Not Resolved]
  - Lymphadenopathy [Not Recovered/Not Resolved]
  - Paraesthesia [Not Recovered/Not Resolved]
  - Drug ineffective [Unknown]

NARRATIVE: CASE EVENT DATE: 20240101
